FAERS Safety Report 11282090 (Version 1)
Quarter: 2015Q3

REPORT INFORMATION
  Report Type: Report from Study
  Country: US (occurrence: US)
  Receive Date: 20150719
  Receipt Date: 20150719
  Transmission Date: 20151125
  Serious: Yes (Other)
  Sender: FDA-Public Use
  Company Number: US-ABBVIE-15P-163-1426098-00

PATIENT
  Age: 46 Year
  Sex: Female

DRUGS (2)
  1. LUPRON DEPOT [Suspect]
     Active Substance: LEUPROLIDE ACETATE
     Indication: ENDOMETRIOSIS
     Route: 050
     Dates: start: 19850607
  2. LUPRON DEPOT [Suspect]
     Active Substance: LEUPROLIDE ACETATE
     Indication: ENDOMETRIOSIS
     Route: 050
     Dates: start: 20150415

REACTIONS (14)
  - Peritoneal adhesions [Unknown]
  - Peritoneal adhesions [Unknown]
  - Peritoneal adhesions [Unknown]
  - Endometriosis [Unknown]
  - Endometriosis [Unknown]
  - Peritoneal adhesions [Unknown]
  - Endometriosis [Unknown]
  - Hysterectomy [Recovered/Resolved]
  - Exposure during pregnancy [Unknown]
  - Peritoneal adhesions [Unknown]
  - Endometriosis [Unknown]
  - Endometriosis [Unknown]
  - Pelvic pain [Recovered/Resolved]
  - Pelvic pain [Not Recovered/Not Resolved]

NARRATIVE: CASE EVENT DATE: 2010
